FAERS Safety Report 7332914-7 (Version None)
Quarter: 2011Q1

REPORT INFORMATION
  Report Type: 
  Country: None (occurrence: None)
  Receive Date: 20110304
  Receipt Date: 20110224
  Transmission Date: 20110831
  Serious: Yes (Other)
  Sender: FDA-Public Use
  Company Number: US-CEPHALON-2011000916

PATIENT
  Sex: Female

DRUGS (4)
  1. EFFEXOR [Concomitant]
  2. PROVIGIL [Suspect]
     Indication: HYPERSOMNIA
     Route: 048
     Dates: start: 20090901, end: 20100903
  3. LAMICTAL [Concomitant]
  4. PLAVIX [Concomitant]

REACTIONS (1)
  - URTICARIA [None]
